FAERS Safety Report 6975399-2 (Version None)
Quarter: 2010Q3

REPORT INFORMATION
  Report Type: 
  Country: None (occurrence: None)
  Receive Date: 20100910
  Receipt Date: 20090311
  Transmission Date: 20110219
  Serious: No
  Sender: FDA-Public Use
  Company Number: US-WYE-H08547809

PATIENT
  Sex: Female
  Weight: 79 kg

DRUGS (4)
  1. PRISTIQ [Suspect]
     Indication: BIPOLAR I DISORDER
     Route: 048
     Dates: start: 20090101
  2. VALIUM [Concomitant]
  3. SYNTHROID [Concomitant]
  4. RITALIN [Concomitant]

REACTIONS (2)
  - CRYING [None]
  - DRUG INEFFECTIVE [None]
